FAERS Safety Report 26127901 (Version 1)
Quarter: 2025Q4

REPORT INFORMATION
  Report Type: Spontaneous
  Country: US (occurrence: US)
  Receive Date: 20251206
  Receipt Date: 20251206
  Transmission Date: 20260117
  Serious: No
  Sender: ALEXION PHARMACEUTICALS
  Company Number: US-AstraZeneca-CH-01005910AP

PATIENT
  Sex: Male

DRUGS (1)
  1. BREZTRI [Suspect]
     Active Substance: BUDESONIDE\FORMOTEROL\GLYCOPYRROLATE
     Dosage: 160 MICROGRAM

REACTIONS (13)
  - Device delivery system issue [Unknown]
  - Product dose omission issue [Unknown]
  - Device use issue [Unknown]
  - Device malfunction [Unknown]
  - Device delivery system issue [Unknown]
  - Product preparation issue [Unknown]
  - Device ineffective [Unknown]
  - Dyspnoea [Unknown]
  - No adverse event [Unknown]
  - Flushing [Unknown]
  - Device defective [Unknown]
  - Flushing [Unknown]
  - Skin warm [Unknown]
